FAERS Safety Report 25686220 (Version 1)
Quarter: 2025Q3

REPORT INFORMATION
  Report Type: Spontaneous
  Country: US (occurrence: US)
  Receive Date: 20250815
  Receipt Date: 20250815
  Transmission Date: 20251021
  Serious: Yes (Other)
  Sender: NOVO NORDISK
  Company Number: US-NOVOPROD-1498590

PATIENT
  Age: 72 Year
  Sex: Female

DRUGS (1)
  1. OZEMPIC [Suspect]
     Active Substance: SEMAGLUTIDE
     Indication: Type 2 diabetes mellitus
     Dosage: 1 MG ONCE WEEKLY
     Route: 058
     Dates: start: 2024

REACTIONS (12)
  - Haematochezia [Not Recovered/Not Resolved]
  - Fall [Not Recovered/Not Resolved]
  - Systemic lupus erythematosus [Unknown]
  - Hypertension [Unknown]
  - Gastrointestinal disorder [Not Recovered/Not Resolved]
  - Visual impairment [Unknown]
  - Hypoaesthesia [Not Recovered/Not Resolved]
  - Condition aggravated [Not Recovered/Not Resolved]
  - Blood glucose increased [Not Recovered/Not Resolved]
  - Nausea [Not Recovered/Not Resolved]
  - Constipation [Not Recovered/Not Resolved]
  - Vomiting [Recovered/Resolved]

NARRATIVE: CASE EVENT DATE: 20240101
